FAERS Safety Report 6726036-3 (Version None)
Quarter: 2010Q2

REPORT INFORMATION
  Report Type: 
  Country: None (occurrence: None)
  Receive Date: 20100514
  Receipt Date: 20100507
  Transmission Date: 20101027
  Serious: Yes (Hospitalization)
  Sender: FDA-Public Use
  Company Number: JP-MERCK-1005USA01321

PATIENT

DRUGS (3)
  1. HYZAAR [Suspect]
     Route: 048
  2. CARVEDILOL [Suspect]
     Route: 048
  3. ALLOPURINOL [Suspect]
     Route: 048

REACTIONS (6)
  - CARDIAC FAILURE [None]
  - FLUID OVERLOAD [None]
  - HYPERKALAEMIA [None]
  - RENAL FAILURE ACUTE [None]
  - SINUS ARREST [None]
  - VENTRICULAR TACHYCARDIA [None]
